FAERS Safety Report 13705201 (Version 2)
Quarter: 2017Q3

REPORT INFORMATION
  Report Type: Spontaneous
  Country: GB (occurrence: GB)
  Receive Date: 20170630
  Receipt Date: 20170807
  Transmission Date: 20171127
  Serious: Yes (Death, Other)
  Sender: FDA-Public Use
  Company Number: GB-TEVA-780684ACC

PATIENT
  Age: 19 Year
  Sex: Male
  Weight: 100 kg

DRUGS (28)
  1. RANITIDINE. [Concomitant]
     Active Substance: RANITIDINE
  2. CARBAMAZEPINE. [Concomitant]
     Active Substance: CARBAMAZEPINE
  3. CLONIDINE. [Concomitant]
     Active Substance: CLONIDINE
  4. LACTULOSE SOLUTION [Concomitant]
     Active Substance: LACTULOSE
  5. MORPHINE SULPHATE [Concomitant]
     Active Substance: MORPHINE SULFATE
  6. SENNA [Concomitant]
     Active Substance: SENNA LEAF\SENNOSIDES\SENNOSIDES A AND B
  7. TRANEXAMIC ACID. [Concomitant]
     Active Substance: TRANEXAMIC ACID
  8. QUETIAPINE. [Suspect]
     Active Substance: QUETIAPINE
     Indication: AGITATION
     Route: 042
     Dates: start: 20170204, end: 20170206
  9. HALOPERIDOL. [Suspect]
     Active Substance: HALOPERIDOL
     Indication: AGITATION
     Route: 042
     Dates: start: 20170204, end: 20170206
  10. FUROSEMIDE. [Concomitant]
     Active Substance: FUROSEMIDE
  11. LEVETIRACETAM. [Concomitant]
     Active Substance: LEVETIRACETAM
  12. LABETALOL [Concomitant]
     Active Substance: LABETALOL\LABETALOL HYDROCHLORIDE
  13. MAGNESIUM SULPHATE [Concomitant]
     Active Substance: MAGNESIUM SULFATE
  14. MIDAZOLAM [Concomitant]
     Active Substance: MIDAZOLAM HYDROCHLORIDE
  15. N-ACETYLCYSTEINE [Concomitant]
     Active Substance: ACETYLCYSTEINE
  16. SODIUM PICOSULFATE [Concomitant]
     Active Substance: SODIUM PICOSULFATE
  17. CO-AMOXICLAV [Concomitant]
     Active Substance: AMOXICILLIN\CLAVULANIC ACID
  18. HYDROCORTISONE. [Concomitant]
     Active Substance: HYDROCORTISONE
  19. ATRACURIUM [Concomitant]
     Active Substance: ATRACURIUM
  20. CODEINE PHOSPHATE [Concomitant]
     Active Substance: CODEINE PHOSPHATE
  21. MEROPENEM. [Concomitant]
     Active Substance: MEROPENEM
  22. OMEPRAZOLE. [Concomitant]
     Active Substance: OMEPRAZOLE
  23. PARACETAMOL [Concomitant]
     Active Substance: ACETAMINOPHEN
  24. PROPOFOL. [Concomitant]
     Active Substance: PROPOFOL
  25. QUETIAPINE. [Suspect]
     Active Substance: QUETIAPINE
     Indication: AGITATION
     Dosage: 100 MILLIGRAM DAILY;
     Route: 042
     Dates: start: 20170125, end: 20170204
  26. ENOXAPARIN [Concomitant]
     Active Substance: ENOXAPARIN
  27. LORAZEPAM. [Concomitant]
     Active Substance: LORAZEPAM
  28. NOREPINEPHRINE. [Concomitant]
     Active Substance: NOREPINEPHRINE

REACTIONS (6)
  - Neuroleptic malignant syndrome [Fatal]
  - Tremor [Unknown]
  - Cardiac arrest [Not Recovered/Not Resolved]
  - Autonomic nervous system imbalance [Unknown]
  - Body temperature increased [Unknown]
  - Athetosis [Unknown]

NARRATIVE: CASE EVENT DATE: 20170205
